FAERS Safety Report 17884784 (Version 15)
Quarter: 2022Q1

REPORT INFORMATION
  Report Type: Spontaneous
  Country: US (occurrence: US)
  Receive Date: 20200611
  Receipt Date: 20220107
  Transmission Date: 20220423
  Serious: Yes (Hospitalization, Other)
  Sender: FDA-Public Use
  Company Number: US-PFIZER INC-2019391009

PATIENT
  Age: 35 Year
  Sex: Female
  Weight: 81.658 kg

DRUGS (5)
  1. SOMATROPIN [Suspect]
     Active Substance: SOMATROPIN
     Indication: Blood growth hormone abnormal
     Dosage: 0.4 MG, DAILY
  2. SOMATROPIN [Suspect]
     Active Substance: SOMATROPIN
     Indication: Hypopituitarism
     Dosage: 0.4 MG, ALTERNATE DAY
  3. SOMATROPIN [Suspect]
     Active Substance: SOMATROPIN
     Dosage: 0.6 MG, ALTERNATE DAY
  4. SOMATROPIN [Suspect]
     Active Substance: SOMATROPIN
     Dosage: 0.4 ALTERNATING DAILY WITH 0.6
     Dates: start: 2018
  5. SOMATROPIN [Suspect]
     Active Substance: SOMATROPIN
     Dosage: ALTERNATE DAY (0.4MG FOUR DAYS A WEEK ALTERNATING WITH 0.6MG 3 DAYS A WEEK)
     Dates: start: 2018

REACTIONS (21)
  - Psychotic disorder [Unknown]
  - Road traffic accident [Unknown]
  - Impaired healing [Unknown]
  - Vocal cord paralysis [Unknown]
  - Hypopituitarism [Unknown]
  - Disease progression [Unknown]
  - Brain injury [Unknown]
  - Mental fatigue [Unknown]
  - Hypermobility syndrome [Unknown]
  - Weight increased [Unknown]
  - Insulin-like growth factor increased [Unknown]
  - Malaise [Unknown]
  - Vocal cord disorder [Unknown]
  - Depression [Unknown]
  - Hair colour changes [Unknown]
  - Eyelid ptosis [Unknown]
  - Skin disorder [Unknown]
  - Inappropriate schedule of product administration [Unknown]
  - Product administration error [Unknown]
  - Wrong technique in product usage process [Unknown]
  - Product storage error [Unknown]

NARRATIVE: CASE EVENT DATE: 20200101
